FAERS Safety Report 7995130-1 (Version None)
Quarter: 2011Q4

REPORT INFORMATION
  Report Type: 
  Country: None (occurrence: None)
  Receive Date: 20111220
  Receipt Date: 20111215
  Transmission Date: 20120403
  Serious: Yes (Hospitalization)
  Sender: FDA-Public Use
  Company Number: US-GLAXOSMITHKLINE-A0958293A

PATIENT
  Age: 79 Year
  Sex: Male

DRUGS (8)
  1. AVODART [Concomitant]
  2. METFORMIN HCL [Concomitant]
  3. GLYBURIDE [Concomitant]
  4. LISINOPRIL [Concomitant]
  5. FUROSEMIDE [Concomitant]
  6. AVANDIA [Suspect]
     Indication: TYPE 2 DIABETES MELLITUS
     Dosage: 4MG PER DAY
     Route: 048
  7. DOXAZOSIN MESYLATE [Concomitant]
  8. CRESTOR [Concomitant]

REACTIONS (1)
  - PULMONARY THROMBOSIS [None]
